FAERS Safety Report 6121518-X (Version None)
Quarter: 2009Q1

REPORT INFORMATION
  Report Type: 
  Country: None (occurrence: None)
  Receive Date: 20090313
  Receipt Date: 20090226
  Transmission Date: 20090719
  Serious: Yes (Hospitalization)
  Sender: FDA-Public Use
  Company Number: 2009AL001275

PATIENT
  Age: 66 Year
  Sex: Female

DRUGS (9)
  1. AMLODIPINE BESYLATE [Suspect]
     Indication: DRUG USE FOR UNKNOWN INDICATION
     Dosage: PO
     Route: 048
  2. DEXAMETHASONE TAB [Concomitant]
  3. LEVOTHYROXINE SODIUM [Concomitant]
  4. OMEPRAZOLE [Concomitant]
  5. CALCIDIA [Concomitant]
  6. UN-ALFA [Concomitant]
  7. SULFARLEM S 25 [Concomitant]
  8. DEDROGYL [Concomitant]
  9. VELCADE [Concomitant]

REACTIONS (8)
  - ACUTE CORONARY SYNDROME [None]
  - ACUTE PULMONARY OEDEMA [None]
  - ARRHYTHMIA [None]
  - ASPHYXIA [None]
  - BLOOD PRESSURE DECREASED [None]
  - CARDIAC FAILURE [None]
  - RESPIRATORY DISTRESS [None]
  - TACHYCARDIA [None]
